FAERS Safety Report 9078741 (Version 1)
Quarter: 2013Q1

REPORT INFORMATION
  Report Type: Report from Study
  Country: US (occurrence: US)
  Receive Date: 20130130
  Receipt Date: 20130130
  Transmission Date: 20140127
  Serious: No
  Sender: FDA-Public Use
  Company Number: US-ABBOTT-12P-163-0960297-00

PATIENT
  Age: 59 Year
  Sex: Male
  Weight: 122.58 kg

DRUGS (3)
  1. HUMIRA 40 MG/0.8 ML PEN [Suspect]
     Indication: RHEUMATOID ARTHRITIS
  2. SULFASALAZINE [Concomitant]
     Indication: RHEUMATOID ARTHRITIS
  3. PENTOPROZOL [Concomitant]
     Indication: GASTROOESOPHAGEAL REFLUX DISEASE

REACTIONS (5)
  - Device malfunction [Unknown]
  - Incorrect dose administered [Unknown]
  - Oral pain [Not Recovered/Not Resolved]
  - Injection site reaction [Unknown]
  - Injection site haemorrhage [Unknown]
